FAERS Safety Report 25254830 (Version 1)
Quarter: 2025Q2

REPORT INFORMATION
  Report Type: Spontaneous
  Country: US (occurrence: US)
  Receive Date: 20250430
  Receipt Date: 20250430
  Transmission Date: 20250717
  Serious: No
  Sender: STALLERGENES
  Company Number: US-STALCOR-2025-AER-00503

PATIENT
  Age: 15 Year
  Sex: Male

DRUGS (2)
  1. PALFORZIA [Suspect]
     Active Substance: PEANUT
     Indication: Food allergy
     Dosage: REACTIVE DOSE?20MG: LVL4: MIX CONTENTS OF CAPSULES WELL WITH SEMISOLID FOOD AS DIRECTED AND CONSUME
     Route: 048
     Dates: start: 202502, end: 202502
  2. PALFORZIA [Suspect]
     Active Substance: PEANUT
     Dosage: PATIENT TO BE RESTARTED ON LVL 3 AT 12MG IN RESPONSE TO THE REPORTED AE.?LVL3 WAS DISPENSED ON 08-FE
     Route: 048

REACTIONS (2)
  - Drug intolerance [Not Recovered/Not Resolved]
  - Product dose omission in error [Not Recovered/Not Resolved]

NARRATIVE: CASE EVENT DATE: 20250201
